FAERS Safety Report 10204603 (Version 1)
Quarter: 2014Q2

REPORT INFORMATION
  Report Type: Spontaneous
  Country: US (occurrence: US)
  Receive Date: 20140529
  Receipt Date: 20140529
  Transmission Date: 20141212
  Serious: No
  Sender: FDA-Public Use
  Company Number: US-B.I. PHARMACEUTICALS,INC./RIDGEFIELD-2014-BI-22231BP

PATIENT
  Sex: Female
  Weight: 75 kg

DRUGS (5)
  1. SPIRIVA [Suspect]
     Indication: PRODUCT USED FOR UNKNOWN INDICATION
     Dosage: 18 MCG
     Route: 055
     Dates: start: 2013, end: 2013
  2. SPIRIVA [Suspect]
     Dosage: 18 MCG
     Route: 055
     Dates: start: 201405
  3. VITAMIN D3 [Concomitant]
     Dosage: 1 ANZ
     Route: 048
  4. LEVOTHYROXINE [Concomitant]
     Indication: HYPOTHYROIDISM
     Dosage: 0.137 MG
     Route: 048
  5. PRILOSEC [Concomitant]
     Indication: HIATUS HERNIA
     Route: 048

REACTIONS (2)
  - Oesophageal disorder [Not Recovered/Not Resolved]
  - Regurgitation [Not Recovered/Not Resolved]
